FAERS Safety Report 12239011 (Version 4)
Quarter: 2016Q3

REPORT INFORMATION
  Report Type: Spontaneous
  Country: US (occurrence: US)
  Receive Date: 20160405
  Receipt Date: 20160726
  Transmission Date: 20161109
  Serious: No
  Sender: FDA-Public Use
  Company Number: US-PFIZER INC-2016073554

PATIENT
  Age: 61 Year
  Sex: Female

DRUGS (8)
  1. CYANOCOBALAMIN. [Concomitant]
     Active Substance: CYANOCOBALAMIN
     Dosage: UNK
  2. ONDANSETRON [Concomitant]
     Active Substance: ONDANSETRON
     Dosage: UNK
  3. XELJANZ [Suspect]
     Active Substance: TOFACITINIB CITRATE
     Indication: OSTEOARTHRITIS
     Dosage: 5 MG, UNK
  4. XELJANZ [Suspect]
     Active Substance: TOFACITINIB CITRATE
     Indication: CROHN^S DISEASE
     Dosage: 10 MG, 2X/DAY
     Dates: start: 201602
  5. BUTALBITAL [Concomitant]
     Active Substance: BUTALBITAL
     Dosage: UNK
  6. METHOTREXATE. [Concomitant]
     Active Substance: METHOTREXATE
     Dosage: UNK
  7. GAVISCON [Concomitant]
     Active Substance: ALUMINUM HYDROXIDE\MAGNESIUM CARBONATE
     Dosage: UNK
     Dates: start: 201508
  8. OMEPRAZOLE. [Concomitant]
     Active Substance: OMEPRAZOLE
     Dosage: UNK

REACTIONS (10)
  - Dyspnoea [Recovered/Resolved]
  - Nausea [Unknown]
  - Pain [Not Recovered/Not Resolved]
  - Feeling abnormal [Not Recovered/Not Resolved]
  - Cough [Not Recovered/Not Resolved]
  - Dry throat [Not Recovered/Not Resolved]
  - Abdominal distension [Not Recovered/Not Resolved]
  - Fatigue [Not Recovered/Not Resolved]
  - Product use issue [Unknown]
  - Headache [Not Recovered/Not Resolved]

NARRATIVE: CASE EVENT DATE: 201602
